FAERS Safety Report 7074974-7 (Version None)
Quarter: 2010Q4

REPORT INFORMATION
  Report Type: 
  Country: None (occurrence: None)
  Receive Date: 20101029
  Receipt Date: 20100319
  Transmission Date: 20110411
  Serious: No
  Sender: FDA-Public Use
  Company Number: US-WYE-H13751510

PATIENT
  Age: 53 Year
  Sex: Male
  Weight: 79.45 kg

DRUGS (5)
  1. ALAVERT [Suspect]
     Indication: RHINORRHOEA
     Route: 048
     Dates: start: 20100219, end: 20100219
  2. ALAVERT [Suspect]
     Indication: HYPERSENSITIVITY
  3. ALAVERT [Suspect]
     Indication: SNEEZING
  4. ALAVERT [Suspect]
     Indication: EYE PRURITUS
  5. ALAVERT [Suspect]
     Indication: LACRIMATION INCREASED

REACTIONS (1)
  - DRUG INEFFECTIVE [None]
